FAERS Safety Report 26181531 (Version 1)
Quarter: 2025Q4

REPORT INFORMATION
  Report Type: Spontaneous
  Country: CN (occurrence: CN)
  Receive Date: 20251221
  Receipt Date: 20251221
  Transmission Date: 20260118
  Serious: Yes (Other)
  Sender: BIOGEN
  Company Number: CN-BIOGEN-2095722

PATIENT
  Age: 56 Year
  Sex: Female

DRUGS (3)
  1. QALSODY [Suspect]
     Active Substance: TOFERSEN
     Indication: Amyotrophic lateral sclerosis
  2. QALSODY [Suspect]
     Active Substance: TOFERSEN
  3. RILUZOLE [Concomitant]
     Active Substance: RILUZOLE
     Indication: Product used for unknown indication

REACTIONS (1)
  - Bulbar palsy [Not Recovered/Not Resolved]

NARRATIVE: CASE EVENT DATE: 20250101
